FAERS Safety Report 14328048 (Version 1)
Quarter: 2017Q4

REPORT INFORMATION
  Report Type: Other
  Country: US (occurrence: US)
  Receive Date: 20171227
  Receipt Date: 20171227
  Transmission Date: 20180321
  Serious: Yes (Other)
  Sender: FDA-Public Use
  Company Number: US-ALSI-201700469

PATIENT
  Age: 80 Year
  Sex: Male

DRUGS (1)
  1. 100% OXYGEN [Suspect]
     Active Substance: OXYGEN
     Indication: SKIN ULCER
     Route: 065

REACTIONS (2)
  - Cerebrovascular accident [Not Recovered/Not Resolved]
  - Generalised tonic-clonic seizure [Not Recovered/Not Resolved]
